FAERS Safety Report 25525288 (Version 3)
Quarter: 2025Q3

REPORT INFORMATION
  Report Type: Spontaneous
  Country: US (occurrence: US)
  Receive Date: 20250707
  Receipt Date: 20250819
  Transmission Date: 20251020
  Serious: No
  Sender: SANOFI AVENTIS
  Company Number: US-SA-2025SA189876

PATIENT
  Age: 34 Year
  Sex: Female

DRUGS (1)
  1. ALTUVIIIO [Suspect]
     Active Substance: EFANESOCTOCOG ALFA
     Indication: Haemorrhage
     Dosage: 4550 U(+/-10%), Q4D (EVERY 72 HOURS AS NEEDED)
     Route: 042

REACTIONS (3)
  - Heavy menstrual bleeding [Unknown]
  - Fatigue [Recovered/Resolved]
  - Headache [Recovered/Resolved]

NARRATIVE: CASE EVENT DATE: 20250615
